FAERS Safety Report 19000291 (Version 1)
Quarter: 2021Q1

REPORT INFORMATION
  Report Type: Spontaneous
  Country: BR (occurrence: BR)
  Receive Date: 20210312
  Receipt Date: 20210312
  Transmission Date: 20210420
  Serious: Yes (Hospitalization, Other)
  Sender: FDA-Public Use
  Company Number: BR-JNJFOC-20191012609

PATIENT
  Sex: Female

DRUGS (1)
  1. IMOSEC [Suspect]
     Active Substance: LOPERAMIDE
     Indication: DIARRHOEA
     Route: 048

REACTIONS (7)
  - Hospitalisation [Unknown]
  - Anal incontinence [Not Recovered/Not Resolved]
  - Urinary tract infection [Unknown]
  - Gastrointestinal tract irritation [Unknown]
  - Haemorrhage [Not Recovered/Not Resolved]
  - Diarrhoea [Unknown]
  - Ileostomy [Unknown]
